FAERS Safety Report 9603080 (Version 1)
Quarter: 2013Q4

REPORT INFORMATION
  Report Type: Spontaneous
  Country: US (occurrence: US)
  Receive Date: 20131007
  Receipt Date: 20131007
  Transmission Date: 20140711
  Serious: Yes (Hospitalization)
  Sender: FDA-Public Use
  Company Number: US-GLAXOSMITHKLINE-A1044384A

PATIENT
  Age: 74 Year
  Sex: Female

DRUGS (1)
  1. PROMACTA [Suspect]
     Indication: PLATELET DISORDER
     Dosage: 12.5MG UNKNOWN
     Dates: start: 20130506

REACTIONS (5)
  - Hip arthroplasty [Unknown]
  - Rehabilitation therapy [Unknown]
  - Swelling [Unknown]
  - Fall [Unknown]
  - Confusional state [Unknown]
